FAERS Safety Report 18061816 (Version 1)
Quarter: 2020Q3

REPORT INFORMATION
  Report Type: Spontaneous
  Country: GB (occurrence: GB)
  Receive Date: 20200723
  Receipt Date: 20200723
  Transmission Date: 20201103
  Serious: Yes (Other)
  Sender: FDA-Public Use
  Company Number: GB-NOVOPROD-739042

PATIENT
  Age: 80 Year
  Sex: Male
  Weight: 63.72 kg

DRUGS (10)
  1. METFORMIN [Concomitant]
     Active Substance: METFORMIN HYDROCHLORIDE
     Dosage: TOTAL DAILY DOSE WAS REPORTED AS 1G (UNK BID)
     Route: 048
     Dates: start: 1998
  2. NOVOMIX 30 PENFILL [Suspect]
     Active Substance: INSULIN ASPART
     Dosage: 22 UNITS AM AND 14 UNITS PM/14 TO 10(DECREASED DOSE)
     Route: 065
  3. BENDROFLUMETHIAZIDE [Concomitant]
     Active Substance: BENDROFLUMETHIAZIDE
     Dosage: UNK QD
     Route: 048
     Dates: start: 1998
  4. RAMIPRIL. [Concomitant]
     Active Substance: RAMIPRIL
     Dosage: UNK QD
     Route: 048
     Dates: start: 1998
  5. BETAMETHASONE. [Concomitant]
     Active Substance: BETAMETHASONE
     Dosage: SCALP APPLICATION, BID
     Route: 061
     Dates: start: 1998
  6. LANSOPRAZOLE. [Concomitant]
     Active Substance: LANSOPRAZOLE
     Dosage: TOTAL DAILY DOSE :15?30 MG
     Route: 048
     Dates: start: 1998
  7. NOVOMIX 30 PENFILL [Suspect]
     Active Substance: INSULIN ASPART
     Indication: PRODUCT USED FOR UNKNOWN INDICATION
     Dosage: UNK
     Route: 065
     Dates: start: 19980608
  8. DOXAZOSIN [Concomitant]
     Active Substance: DOXAZOSIN MESYLATE
     Dosage: UNK BID
     Route: 048
     Dates: start: 1998
  9. ASPIRINE [Concomitant]
     Active Substance: ASPIRIN
     Dosage: UNK QD
     Route: 048
     Dates: start: 1998
  10. ATORVASTATIN [Concomitant]
     Active Substance: ATORVASTATIN
     Dosage: UNK QD
     Route: 048
     Dates: start: 1998

REACTIONS (3)
  - Blood glucose decreased [Recovered/Resolved]
  - Product quality issue [Unknown]
  - Discomfort [Recovered/Resolved]
